FAERS Safety Report 15155716 (Version 5)
Quarter: 2018Q4

REPORT INFORMATION
  Report Type: Report from Study
  Country: GR (occurrence: GR)
  Receive Date: 20180717
  Receipt Date: 20181109
  Transmission Date: 20190204
  Serious: Yes (Hospitalization, Other)
  Sender: FDA-Public Use
  Company Number: GR-BIOGEN-2018BI00605022

PATIENT
  Age: 39 Year
  Sex: Female
  Weight: 50 kg

DRUGS (7)
  1. ZERBAXA [Concomitant]
     Active Substance: CEFTOLOZANE SULFATE\TAZOBACTAM SODIUM
     Indication: LOWER RESPIRATORY TRACT INFECTION
     Route: 065
  2. PEGINTERFERON BETA [Concomitant]
     Indication: MULTIPLE SCLEROSIS
     Route: 058
     Dates: start: 201804, end: 20180629
  3. ECALTA [Concomitant]
     Active Substance: ANIDULAFUNGIN
     Indication: LOWER RESPIRATORY TRACT INFECTION
     Route: 065
  4. DACLIZUMAB HYP [Suspect]
     Active Substance: DACLIZUMAB
     Indication: MULTIPLE SCLEROSIS
     Route: 058
     Dates: start: 20140317
  5. BISOPROLOL [Concomitant]
     Active Substance: BISOPROLOL
     Indication: TACHYCARDIA
     Route: 065
  6. ERYTHROMYCIN. [Concomitant]
     Active Substance: ERYTHROMYCIN
     Indication: GASTROINTESTINAL MOTILITY DISORDER
     Route: 065
  7. ZYVOXID [Concomitant]
     Active Substance: LINEZOLID
     Indication: LOWER RESPIRATORY TRACT INFECTION
     Route: 065

REACTIONS (1)
  - Guillain-Barre syndrome [Recovered/Resolved with Sequelae]

NARRATIVE: CASE EVENT DATE: 20180628
